FAERS Safety Report 25640446 (Version 1)
Quarter: 2025Q3

REPORT INFORMATION
  Report Type: Spontaneous
  Country: AU (occurrence: AU)
  Receive Date: 20250804
  Receipt Date: 20250804
  Transmission Date: 20251020
  Serious: Yes (Other)
  Sender: MYLAN
  Company Number: AU-MYLANLABS-2025M1064875

PATIENT
  Age: 34 Year
  Sex: Female

DRUGS (2)
  1. LYRICA [Suspect]
     Active Substance: PREGABALIN
     Indication: Carpal tunnel syndrome
     Dates: start: 20151101, end: 20160306
  2. LYRICA [Suspect]
     Active Substance: PREGABALIN
     Indication: Pain management

REACTIONS (2)
  - Suicidal ideation [Recovered/Resolved]
  - Mood swings [Recovered/Resolved]

NARRATIVE: CASE EVENT DATE: 20151215
